FAERS Safety Report 15318907 (Version 1)
Quarter: 2018Q3

REPORT INFORMATION
  Report Type: Spontaneous
  Country: US (occurrence: US)
  Receive Date: 20180820
  Receipt Date: 20180820
  Transmission Date: 20181010
  Serious: No
  Sender: FDA-Public Use
  Company Number: None

PATIENT
  Age: 46 Year
  Sex: Male
  Weight: 90.72 kg

DRUGS (2)
  1. SUBOXONE [Suspect]
     Active Substance: BUPRENORPHINE HYDROCHLORIDE\NALOXONE HYDROCHLORIDE
     Indication: DRUG DEPENDENCE
     Route: 048
     Dates: start: 20180101, end: 20180817
  2. BUPRENORPHINE. [Concomitant]
     Active Substance: BUPRENORPHINE
     Dates: start: 20180101, end: 20180817

REACTIONS (9)
  - Mood swings [None]
  - Poor quality sleep [None]
  - Disease recurrence [None]
  - Drug intolerance [None]
  - Anxiety [None]
  - Drug dependence [None]
  - Asthenia [None]
  - Nausea [None]
  - Irritability [None]

NARRATIVE: CASE EVENT DATE: 20180817
